FAERS Safety Report 9837540 (Version 2)
Quarter: 2014Q1

REPORT INFORMATION
  Report Type: Spontaneous
  Country: US (occurrence: US)
  Receive Date: 20140123
  Receipt Date: 20140214
  Transmission Date: 20141002
  Serious: Yes (Other)
  Sender: FDA-Public Use
  Company Number: US-JNJFOC-20140110741

PATIENT
  Sex: Female

DRUGS (2)
  1. NUCYNTA IR [Suspect]
     Indication: PAIN
     Dosage: DOUBLED DOSE
     Route: 048
  2. NUCYNTA IR [Suspect]
     Indication: PAIN
     Route: 048

REACTIONS (8)
  - Systemic lupus erythematosus [Unknown]
  - Bedridden [Unknown]
  - Osteoarthritis [Unknown]
  - General physical health deterioration [Unknown]
  - Fibromyalgia [Unknown]
  - Adverse event [Unknown]
  - Treatment noncompliance [Unknown]
  - Pain [Unknown]
